FAERS Safety Report 8438850-7 (Version None)
Quarter: 2012Q2

REPORT INFORMATION
  Report Type: 
  Country: None (occurrence: None)
  Receive Date: 20120615
  Receipt Date: 20120605
  Transmission Date: 20120825
  Serious: Yes (Hospitalization)
  Sender: FDA-Public Use
  Company Number: SE-ELI_LILLY_AND_COMPANY-SE201206001550

PATIENT
  Sex: Male
  Weight: 58.4 kg

DRUGS (2)
  1. TRILAFON [Concomitant]
     Indication: SCHIZOPHRENIA
     Dosage: UNK
     Dates: start: 20110620
  2. OLANZAPINE [Suspect]
     Indication: SCHIZOPHRENIA
     Dosage: 405 MG, UNK
     Route: 030
     Dates: start: 20100426

REACTIONS (4)
  - SPEECH DISORDER [None]
  - FATIGUE [None]
  - HYPOAESTHESIA ORAL [None]
  - HYPOAESTHESIA [None]
